FAERS Safety Report 15917455 (Version 3)
Quarter: 2019Q1

REPORT INFORMATION
  Report Type: Report from Study
  Country: US (occurrence: US)
  Receive Date: 20190205
  Receipt Date: 20190304
  Transmission Date: 20190417
  Serious: Yes (Hospitalization, Other)
  Sender: FDA-Public Use
  Company Number: PHEH2019US004950

PATIENT
  Sex: Male

DRUGS (1)
  1. PROMACTA [Suspect]
     Active Substance: ELTROMBOPAG OLAMINE
     Indication: PRODUCT USED FOR UNKNOWN INDICATION
     Dosage: 25 MG, QD
     Route: 048
     Dates: start: 20140121, end: 20170117

REACTIONS (7)
  - Eye colour change [Unknown]
  - Hepatic cirrhosis [Unknown]
  - Asthenia [Unknown]
  - Yellow skin [Unknown]
  - Diarrhoea [Unknown]
  - Faeces discoloured [Unknown]
  - Pollakiuria [Unknown]
